FAERS Safety Report 8251331-9 (Version None)
Quarter: 2012Q2

REPORT INFORMATION
  Report Type: 
  Country: None (occurrence: None)
  Receive Date: 20120402
  Receipt Date: 20120326
  Transmission Date: 20120825
  Serious: Yes (Hospitalization)
  Sender: FDA-Public Use
  Company Number: US-GLAXOSMITHKLINE-A0971156A

PATIENT
  Age: 75 Year
  Sex: Female

DRUGS (6)
  1. ACETAMINOPHEN + HYDROCODONE [Suspect]
     Dosage: 1TAB PER DAY
     Dates: start: 20120325
  2. INSULIN [Concomitant]
  3. REQUIP [Suspect]
     Indication: RESTLESS LEGS SYNDROME
     Dosage: 2MG AT NIGHT
     Route: 048
     Dates: start: 20120101
  4. AMBIEN [Concomitant]
  5. AVAPRO [Concomitant]
  6. METFORMIN HCL [Concomitant]

REACTIONS (4)
  - ANXIETY [None]
  - LYMPHOEDEMA [None]
  - PANIC REACTION [None]
  - PAIN IN EXTREMITY [None]
